FAERS Safety Report 8548326-4 (Version None)
Quarter: 2012Q3

REPORT INFORMATION
  Report Type: 
  Country: None (occurrence: None)
  Receive Date: 20120730
  Receipt Date: 20120718
  Transmission Date: 20120928
  Serious: Yes (Hospitalization, Other)
  Sender: FDA-Public Use
  Company Number: JP-JNJFOC-20120501374

PATIENT
  Sex: Male
  Weight: 2.46 kg

DRUGS (7)
  1. METOCLOPRAMIDE [Suspect]
     Indication: FOETAL EXPOSURE DURING PREGNANCY
     Route: 064
  2. FENTANYL CITRATE [Suspect]
     Indication: FOETAL EXPOSURE DURING PREGNANCY
     Route: 064
     Dates: start: 20111025, end: 20111025
  3. MORPHINE HYDROCHLORIDE [Suspect]
     Indication: FOETAL EXPOSURE DURING PREGNANCY
     Route: 064
  4. PHENOBARBITAL TAB [Suspect]
     Route: 042
     Dates: start: 20111027, end: 20111031
  5. FENTANYL-100 [Suspect]
     Indication: FOETAL EXPOSURE DURING PREGNANCY
     Route: 064
     Dates: start: 20050101, end: 20111027
  6. PHENOBARBITAL TAB [Suspect]
     Indication: PRODUCT USED FOR UNKNOWN INDICATION
     Route: 042
     Dates: start: 20111027, end: 20111027
  7. ULTIVA [Suspect]
     Indication: FOETAL EXPOSURE DURING PREGNANCY
     Route: 064
     Dates: start: 20111025, end: 20111025

REACTIONS (10)
  - BLOOD ALKALINE PHOSPHATASE INCREASED [None]
  - ANALGESIC DRUG LEVEL INCREASED [None]
  - FEEDING DISORDER [None]
  - GAMMA-GLUTAMYLTRANSFERASE INCREASED [None]
  - VOMITING [None]
  - IRRITABILITY [None]
  - DRUG WITHDRAWAL SYNDROME NEONATAL [None]
  - PREMATURE BABY [None]
  - TRANSIENT TACHYPNOEA OF THE NEWBORN [None]
  - HYPERREFLEXIA [None]
